FAERS Safety Report 10777876 (Version 1)
Quarter: 2015Q1

REPORT INFORMATION
  Report Type: Spontaneous
  Country: JP (occurrence: JP)
  Receive Date: 20150209
  Receipt Date: 20150209
  Transmission Date: 20150721
  Serious: Yes (Death, Hospitalization)
  Sender: FDA-Public Use
  Company Number: PHJP2015JP001434

PATIENT
  Age: 86 Year
  Sex: Male

DRUGS (2)
  1. HARNAL [Concomitant]
     Active Substance: TAMSULOSIN HYDROCHLORIDE
     Indication: PRODUCT USED FOR UNKNOWN INDICATION
     Dosage: 0.2 MG, UNK
     Route: 048
  2. ULTIBRO INHALATION CAPSULES [Suspect]
     Active Substance: GLYCOPYRRONIUM\INDACATEROL
     Indication: CHRONIC OBSTRUCTIVE PULMONARY DISEASE
     Dosage: UNK UNK, QD
     Route: 055

REACTIONS (2)
  - Dyspnoea [Fatal]
  - Tuberculosis [Fatal]

NARRATIVE: CASE EVENT DATE: 20141201
